FAERS Safety Report 13863656 (Version 1)
Quarter: 2017Q3

REPORT INFORMATION
  Report Type: Spontaneous
  Country: CZ (occurrence: CZ)
  Receive Date: 20170814
  Receipt Date: 20170814
  Transmission Date: 20171127
  Serious: Yes (Life-Threatening, Other)
  Sender: FDA-Public Use
  Company Number: CZ-MYLANLABS-2017M1048789

PATIENT

DRUGS (9)
  1. PACLITAXEL MYLAN [Suspect]
     Active Substance: PACLITAXEL
     Indication: BREAST NEOPLASM
     Dosage: UNK
     Route: 042
     Dates: start: 20170721, end: 20170721
  2. PARALEN [Concomitant]
     Active Substance: ACETAMINOPHEN
     Dosage: 500 MG, UNK
     Route: 048
  3. AVASTIN [Concomitant]
     Active Substance: BEVACIZUMAB
     Dosage: UNK
     Route: 051
  4. RANITIDINE. [Concomitant]
     Active Substance: RANITIDINE
     Dosage: UNK
     Route: 051
  5. DITHIADEN [Concomitant]
     Active Substance: BISULEPIN
     Dosage: UNK
     Route: 051
  6. DEXONA [Concomitant]
     Active Substance: DEXAMETHASONE
     Dosage: UNK
     Route: 051
  7. TRIPLIXAM [Concomitant]
     Active Substance: AMLODIPINE BESYLATE\INDAPAMIDE\PERINDOPRIL ARGININE
     Dosage: UNK
  8. DOLFORIN [Concomitant]
     Active Substance: FENTANYL
     Dosage: UNK
     Route: 062
  9. DEGAN [Concomitant]
     Active Substance: METOCLOPRAMIDE HYDROCHLORIDE
     Dosage: UNK
     Route: 051

REACTIONS (6)
  - Hyperhidrosis [Recovered/Resolved]
  - Erythema [Recovered/Resolved]
  - Restlessness [Recovered/Resolved]
  - Hypotension [Recovered/Resolved]
  - Musculoskeletal discomfort [Recovered/Resolved]
  - Hypersensitivity [Recovered/Resolved]

NARRATIVE: CASE EVENT DATE: 20170721
